FAERS Safety Report 26006758 (Version 1)
Quarter: 2025Q4

REPORT INFORMATION
  Report Type: Spontaneous
  Country: JP (occurrence: JP)
  Receive Date: 20251106
  Receipt Date: 20251106
  Transmission Date: 20260117
  Serious: Yes (Other)
  Sender: ALEXION PHARMACEUTICALS
  Company Number: JP-ASTRAZENECA-202510JPN025605JP

PATIENT
  Age: 5 Decade
  Sex: Female

DRUGS (1)
  1. LYNPARZA [Suspect]
     Active Substance: OLAPARIB
     Indication: Ovarian cancer
     Route: 065

REACTIONS (6)
  - Blood pressure systolic increased [Unknown]
  - Vomiting [Unknown]
  - Proteinuria [Unknown]
  - Nausea [Unknown]
  - Malaise [Unknown]
  - Erythema nodosum [Unknown]
